FAERS Safety Report 7900913-X (Version None)
Quarter: 2011Q4

REPORT INFORMATION
  Report Type: 
  Country: None (occurrence: None)
  Receive Date: 20111108
  Receipt Date: 20111025
  Transmission Date: 20120403
  Serious: Yes (Death, Other)
  Sender: FDA-Public Use
  Company Number: CA-ELI_LILLY_AND_COMPANY-CA201110006609

PATIENT
  Sex: Female

DRUGS (11)
  1. FERROUS GLUCONATE [Concomitant]
  2. HYDROCHLOROTHIAZIDE [Concomitant]
  3. ALTACE [Concomitant]
  4. WARFARIN SODIUM [Concomitant]
  5. NORVASC [Concomitant]
  6. FUROSEMIDE [Concomitant]
  7. METOPROLOL [Concomitant]
  8. VITAMIN B-12 [Concomitant]
  9. DIGOXIN [Concomitant]
  10. ZYPREXA [Suspect]
     Dosage: 10 MG, QD
     Route: 048
  11. ZYPREXA [Suspect]
     Dosage: 15 MG, QD
     Route: 048

REACTIONS (4)
  - DEATH [None]
  - COGNITIVE DISORDER [None]
  - CEREBROVASCULAR ACCIDENT [None]
  - DIABETES MELLITUS [None]
